FAERS Safety Report 5895287-2 (Version None)
Quarter: 2008Q3

REPORT INFORMATION
  Report Type: 
  Country: None (occurrence: None)
  Receive Date: 20080924
  Receipt Date: 20080915
  Transmission Date: 20090109
  Serious: Yes (Hospitalization)
  Sender: FDA-Public Use
  Company Number: JP-PURDUE-MAG_2008_0000720

PATIENT
  Age: 57 Year
  Sex: Male
  Weight: 76 kg

DRUGS (10)
  1. OXYCODONE HCL [Suspect]
     Indication: DRUG USE FOR UNKNOWN INDICATION
     Route: 048
     Dates: start: 20080712
  2. MORPHINE SULFATE INJ [Suspect]
     Indication: PAIN
     Route: 065
     Dates: start: 20080712
  3. VESICARE [Concomitant]
     Route: 048
     Dates: start: 20080709
  4. KAYEXALATE [Concomitant]
     Route: 048
     Dates: end: 20080709
  5. LOXONIN [Concomitant]
     Route: 048
  6. MAG-LAX [Concomitant]
     Route: 048
  7. NORVASC [Concomitant]
     Route: 048
  8. BLOPRESS [Concomitant]
     Route: 048
  9. ALOSENN [Concomitant]
     Route: 048
  10. LIPOVAS ^BANYU^ [Concomitant]
     Dosage: UNK, UNK
     Route: 048

REACTIONS (5)
  - ALTERED STATE OF CONSCIOUSNESS [None]
  - DIARRHOEA [None]
  - ELECTROCARDIOGRAM QT PROLONGED [None]
  - PLEURAL EFFUSION [None]
  - SOMNOLENCE [None]
